FAERS Safety Report 25189498 (Version 1)
Quarter: 2025Q2

REPORT INFORMATION
  Report Type: Spontaneous
  Country: GB (occurrence: GB)
  Receive Date: 20250411
  Receipt Date: 20250411
  Transmission Date: 20250717
  Serious: Yes (Other)
  Sender: CARNEGIE PHARMACEUTICALS
  Company Number: GB-CARNEGIE-000065

PATIENT
  Age: 56 Year
  Sex: Female

DRUGS (5)
  1. IMIPENEM [Suspect]
     Active Substance: IMIPENEM
     Indication: Keratitis
     Route: 061
  2. CIPROFLOXACIN [Suspect]
     Active Substance: CIPROFLOXACIN
     Indication: Keratitis
     Route: 061
  3. ATROPINE [Suspect]
     Active Substance: ATROPINE
     Indication: Keratitis
     Route: 061
  4. DEXAMETHASONE [Suspect]
     Active Substance: DEXAMETHASONE
     Indication: Keratitis
     Route: 061
  5. ERYTHROMYCIN [Suspect]
     Active Substance: ERYTHROMYCIN
     Indication: Keratitis
     Route: 061

REACTIONS (2)
  - Pathogen resistance [Unknown]
  - Treatment failure [Unknown]
